FAERS Safety Report 18790482 (Version 1)
Quarter: 2021Q1

REPORT INFORMATION
  Report Type: Spontaneous
  Country: DE (occurrence: DE)
  Receive Date: 20210126
  Receipt Date: 20210126
  Transmission Date: 20210419
  Serious: Yes (Hospitalization)
  Sender: FDA-Public Use
  Company Number: DE-PFIZER INC-2021057109

PATIENT
  Age: 76 Year
  Sex: Female

DRUGS (5)
  1. ARLEVERT [Concomitant]
     Active Substance: CINNARIZINE\DIMENHYDRINATE
     Dosage: 1 DF, 1X/DAY (1?0?0?0, TABLETS)
  2. CANDESARTAN HCT [Concomitant]
     Active Substance: CANDESARTAN CILEXETIL\HYDROCHLOROTHIAZIDE
     Dosage: 1 DF, 2X/DAY (1?0?1?0, TABLETS)
  3. SULPIRID [Suspect]
     Active Substance: SULPIRIDE
     Dosage: 50 MG, 1X/DAY (1?0?0?0)
  4. METOPROLOL. [Concomitant]
     Active Substance: METOPROLOL
     Dosage: 100 MG, 1X/DAY (1?0?0?0)
  5. AMLODIPINE BESILATE [Suspect]
     Active Substance: AMLODIPINE BESYLATE
     Dosage: 5 MG, 2X/DAY (1?0?1?0)

REACTIONS (3)
  - Palpitations [Unknown]
  - Dyspnoea exertional [Unknown]
  - Tachycardia [Unknown]
